FAERS Safety Report 13136915 (Version 1)
Quarter: 2017Q1

REPORT INFORMATION
  Report Type: Spontaneous
  Country: US (occurrence: US)
  Receive Date: 20170123
  Receipt Date: 20170123
  Transmission Date: 20170428
  Serious: Yes (Other)
  Sender: FDA-Public Use
  Company Number: US-GLAXOSMITHKLINE-US2017007921

PATIENT
  Age: 71 Year
  Sex: Male

DRUGS (21)
  1. FLUTICASONE PROPIONATE NASAL [Concomitant]
     Active Substance: FLUTICASONE PROPIONATE
  2. IRON [Concomitant]
     Active Substance: IRON
  3. OMEPRAZOLE. [Concomitant]
     Active Substance: OMEPRAZOLE
  4. TEMAZEPAM. [Concomitant]
     Active Substance: TEMAZEPAM
  5. AMLODIPINE [Concomitant]
     Active Substance: AMLODIPINE BESYLATE
  6. FUROSEMIDE. [Concomitant]
     Active Substance: FUROSEMIDE
  7. NYSTATIN. [Concomitant]
     Active Substance: NYSTATIN
  8. OMEGA 3 [Concomitant]
     Active Substance: OMEGA-3 FATTY ACIDS
  9. SPIRIVA [Concomitant]
     Active Substance: TIOTROPIUM BROMIDE MONOHYDRATE
  10. FINASTERIDE. [Concomitant]
     Active Substance: FINASTERIDE
  11. HYDROCODONE [Concomitant]
     Active Substance: HYDROCODONE
  12. TAMSULOSIN [Concomitant]
     Active Substance: TAMSULOSIN
  13. LORAZEPAM. [Concomitant]
     Active Substance: LORAZEPAM
  14. PRISTIQ EXTENDED-RELEASE [Concomitant]
     Active Substance: DESVENLAFAXINE SUCCINATE
  15. VENTOLIN [Concomitant]
     Active Substance: ALBUTEROL SULFATE
  16. ADVAIR DISKUS [Suspect]
     Active Substance: FLUTICASONE PROPIONATE\SALMETEROL XINAFOATE
     Indication: ASTHMA
     Dosage: 2 PUFF(S), BID
     Route: 055
     Dates: start: 2006
  17. VITAMIN D3 [Concomitant]
     Active Substance: CHOLECALCIFEROL
  18. ADVAIR DISKUS [Suspect]
     Active Substance: FLUTICASONE PROPIONATE\SALMETEROL XINAFOATE
     Indication: CHRONIC OBSTRUCTIVE PULMONARY DISEASE
  19. ATORVASTATIN [Concomitant]
     Active Substance: ATORVASTATIN
  20. ASPIRIN (BABY) [Concomitant]
     Active Substance: ASPIRIN
  21. METOPROLOL. [Concomitant]
     Active Substance: METOPROLOL

REACTIONS (4)
  - Drug dose omission [Not Recovered/Not Resolved]
  - Cough [Not Recovered/Not Resolved]
  - Overdose [Not Recovered/Not Resolved]
  - Pulmonary congestion [Not Recovered/Not Resolved]

NARRATIVE: CASE EVENT DATE: 20170113
